FAERS Safety Report 4348749-3 (Version None)
Quarter: 2004Q1

REPORT INFORMATION
  Report Type: 
  Country: None (occurrence: None)
  Receive Date: 20040325
  Receipt Date: 20040107
  Transmission Date: 20041129
  Serious: No
  Sender: FDA-Public Use
  Company Number: USA031253831

PATIENT
  Age: 54 Year
  Sex: Male

DRUGS (7)
  1. FORTEO [Suspect]
     Indication: OSTEOPOROSIS
     Dosage: 20 UG/DAY
     Dates: start: 20031118
  2. NORVASC [Concomitant]
  3. ZESTRIL [Concomitant]
  4. NEXIUM [Concomitant]
  5. XANAX [Concomitant]
  6. TEMAZEPAM [Concomitant]
  7. APO-METOPROLOL (METOPROLOL TARTRATE) [Concomitant]

REACTIONS (9)
  - ASTHENIA [None]
  - INJECTION SITE BURNING [None]
  - INJECTION SITE DISCOLOURATION [None]
  - INJECTION SITE ERYTHEMA [None]
  - INJECTION SITE HAEMORRHAGE [None]
  - INJECTION SITE PAIN [None]
  - INJURY [None]
  - MUSCLE CRAMP [None]
  - NAUSEA [None]
